FAERS Safety Report 4953063-9 (Version None)
Quarter: 2006Q1

REPORT INFORMATION
  Report Type: 
  Country: None (occurrence: None)
  Receive Date: 20060321
  Receipt Date: 20060302
  Transmission Date: 20060701
  Serious: Yes (Other)
  Sender: FDA-Public Use
  Company Number: S06-FRA-01225-01

PATIENT
  Sex: Female

DRUGS (3)
  1. MEMANTINE HCL [Suspect]
  2. ARICEPT [Suspect]
  3. CORGARD [Suspect]

REACTIONS (2)
  - ARRHYTHMIA [None]
  - DRUG INTERACTION [None]
